FAERS Safety Report 6428144-3 (Version None)
Quarter: 2009Q4

REPORT INFORMATION
  Report Type: 
  Country: None (occurrence: None)
  Receive Date: 20091105
  Receipt Date: 20091005
  Transmission Date: 20100525
  Serious: No
  Sender: FDA-Public Use
  Company Number: US-BAYER-200930387NA

PATIENT
  Age: 26 Year
  Sex: Female
  Weight: 113 kg

DRUGS (2)
  1. MIRENA [Suspect]
     Indication: CONTRACEPTION
     Route: 015
     Dates: start: 20080301, end: 20080401
  2. MIRENA [Suspect]
     Route: 015
     Dates: start: 20080401, end: 20090814

REACTIONS (3)
  - DEVICE EXPULSION [None]
  - MENSTRUATION DELAYED [None]
  - PREGNANCY WITH CONTRACEPTIVE DEVICE [None]
